FAERS Safety Report 12187573 (Version 2)
Quarter: 2016Q1

REPORT INFORMATION
  Report Type: Spontaneous
  Country: US (occurrence: US)
  Receive Date: 20160317
  Receipt Date: 20160328
  Transmission Date: 20160526
  Serious: Yes (Death, Hospitalization, Other)
  Sender: FDA-Public Use
  Company Number: US-GILEAD-2016-0203407

PATIENT
  Age: 73 Year
  Sex: Male

DRUGS (1)
  1. HARVONI [Suspect]
     Active Substance: LEDIPASVIR\SOFOSBUVIR
     Indication: HEPATITIS C
     Dosage: UNK
     Route: 065
     Dates: start: 20160115, end: 20160128

REACTIONS (22)
  - Pseudomonas infection [Unknown]
  - Chills [Unknown]
  - Organising pneumonia [Unknown]
  - Nasal congestion [Unknown]
  - Pulseless electrical activity [Fatal]
  - Cardiomyopathy [Unknown]
  - Acute interstitial pneumonitis [Unknown]
  - Cough [Unknown]
  - Pulmonary embolism [Unknown]
  - Oropharyngeal pain [Unknown]
  - Atrial fibrillation [Unknown]
  - Pulmonary thrombosis [Unknown]
  - Deep vein thrombosis [Unknown]
  - Nausea [Unknown]
  - Dysuria [Unknown]
  - Dizziness [Unknown]
  - Pyrexia [Unknown]
  - Dyspnoea [Unknown]
  - Fluid overload [Unknown]
  - Autoimmune disorder [Unknown]
  - Asthenia [Unknown]
  - Haemoptysis [Unknown]

NARRATIVE: CASE EVENT DATE: 201601
